FAERS Safety Report 5635682-X (Version None)
Quarter: 2008Q1

REPORT INFORMATION
  Report Type: 
  Country: None (occurrence: None)
  Receive Date: 20080220
  Receipt Date: 20080116
  Transmission Date: 20080703
  Serious: Yes (Death, Life-Threatening)
  Sender: FDA-Public Use
  Company Number: 2008AL000804

PATIENT
  Age: 56 Year
  Sex: Male

DRUGS (2)
  1. METOCLOPRAMIDE [Suspect]
     Indication: NAUSEA
     Dosage: 10 MG;QID;PO
     Route: 048
     Dates: start: 20071113, end: 20071115
  2. FLUOROURACIL [Concomitant]

REACTIONS (2)
  - ABDOMINAL PAIN UPPER [None]
  - PAIN IN JAW [None]
